FAERS Safety Report 10779734 (Version 1)
Quarter: 2015Q1

REPORT INFORMATION
  Report Type: Report from Study
  Country: AU (occurrence: AU)
  Receive Date: 20150210
  Receipt Date: 20150210
  Transmission Date: 20150721
  Serious: Yes (Hospitalization)
  Sender: FDA-Public Use
  Company Number: PHHY2015AU004958

PATIENT
  Sex: Male

DRUGS (3)
  1. CLOZARIL [Suspect]
     Active Substance: CLOZAPINE
     Dosage: 600 OT, UNK
     Route: 048
     Dates: end: 20150114
  2. CLOZARIL [Suspect]
     Active Substance: CLOZAPINE
     Indication: SCHIZOPHRENIA
     Dosage: 25 OT, UNK
     Route: 048
     Dates: start: 20051212
  3. CLOZARIL [Suspect]
     Active Substance: CLOZAPINE
     Dosage: RESTARTED ON UP TITRATING DOSE (DOSE UNSPECIFIED)
     Route: 065

REACTIONS (2)
  - Schizophrenia [Unknown]
  - Malaise [Unknown]
